FAERS Safety Report 20599009 (Version 1)
Quarter: 2022Q1

REPORT INFORMATION
  Report Type: Report from Study
  Country: AU (occurrence: AU)
  Receive Date: 20220315
  Receipt Date: 20220315
  Transmission Date: 20220423
  Serious: Yes (Hospitalization)
  Sender: FDA-Public Use
  Company Number: AU-BIOMARINAP-AU-2021-138231

PATIENT
  Age: 16 Year
  Sex: Male
  Weight: 44 kg

DRUGS (1)
  1. INVESTIGATIONAL PRODUCT [Suspect]
     Active Substance: INVESTIGATIONAL PRODUCT
     Indication: Chondrodystrophy
     Dosage: 15 MICROGRAM/KILOGRAM, QD
     Route: 058
     Dates: start: 20180716

REACTIONS (1)
  - Knee deformity [Not Recovered/Not Resolved]

NARRATIVE: CASE EVENT DATE: 20210823
